FAERS Safety Report 6416823-3 (Version None)
Quarter: 2009Q4

REPORT INFORMATION
  Report Type: 
  Country: None (occurrence: None)
  Receive Date: 20091027
  Receipt Date: 20091022
  Transmission Date: 20100525
  Serious: Yes (Death, Life-Threatening, Other)
  Sender: FDA-Public Use
  Company Number: CA-GENENTECH-292907

PATIENT
  Age: 67 Year
  Sex: Female
  Weight: 52 kg

DRUGS (5)
  1. TNKASE [Suspect]
     Indication: DRUG USE FOR UNKNOWN INDICATION
     Dosage: 30 MG, SINGLE
     Route: 042
  2. HEPARIN [Concomitant]
     Indication: DRUG USE FOR UNKNOWN INDICATION
     Dosage: UNK
  3. ASPIRIN [Concomitant]
     Indication: DRUG USE FOR UNKNOWN INDICATION
     Dosage: UNK
  4. NITROGLYCERIN [Concomitant]
     Indication: DRUG USE FOR UNKNOWN INDICATION
     Dosage: UNK
  5. LOPRESSOR [Concomitant]
     Indication: DRUG USE FOR UNKNOWN INDICATION
     Dosage: UNK

REACTIONS (4)
  - DEATH [None]
  - HAEMORRHAGE INTRACRANIAL [None]
  - HEMIPARESIS [None]
  - STUPOR [None]
